FAERS Safety Report 20442422 (Version 1)
Quarter: 2022Q1

REPORT INFORMATION
  Report Type: Spontaneous
  Country: US (occurrence: US)
  Receive Date: 20220208
  Receipt Date: 20220208
  Transmission Date: 20220424
  Serious: No
  Sender: FDA-Public Use
  Company Number: US-ALLERGAN-2126572US

PATIENT
  Age: 67 Year
  Sex: Female

DRUGS (5)
  1. VIIBRYD [Suspect]
     Active Substance: VILAZODONE HYDROCHLORIDE
     Indication: Depression
     Dosage: 40 MG, QD
     Route: 048
     Dates: start: 20210718, end: 20210723
  2. VIIBRYD [Suspect]
     Active Substance: VILAZODONE HYDROCHLORIDE
     Dosage: 20 MG, QD
     Route: 048
     Dates: start: 20210707, end: 202107
  3. VIIBRYD [Suspect]
     Active Substance: VILAZODONE HYDROCHLORIDE
     Dosage: 10 MG, QD
     Route: 048
     Dates: start: 202107, end: 202107
  4. METOPROLOL [Concomitant]
     Active Substance: METOPROLOL
  5. LOSARTAN [Concomitant]
     Active Substance: LOSARTAN

REACTIONS (10)
  - Sinusitis [Recovered/Resolved]
  - Paranasal sinus hypersecretion [Recovered/Resolved]
  - Sinus congestion [Recovered/Resolved]
  - Feeling abnormal [Recovered/Resolved]
  - Eye pain [Recovered/Resolved]
  - Visual impairment [Recovered/Resolved]
  - Vision blurred [Recovered/Resolved]
  - Headache [Recovered/Resolved]
  - Nausea [Recovered/Resolved]
  - Tachycardia [Recovered/Resolved]

NARRATIVE: CASE EVENT DATE: 20210701
